FAERS Safety Report 7929517-X (Version None)
Quarter: 2011Q4

REPORT INFORMATION
  Report Type: 
  Country: None (occurrence: None)
  Receive Date: 20111121
  Receipt Date: 20111108
  Transmission Date: 20120403
  Serious: Yes (Hospitalization, Other)
  Sender: FDA-Public Use
  Company Number: PL-ELI_LILLY_AND_COMPANY-PL201111000906

PATIENT
  Age: 23 Year
  Sex: Female

DRUGS (4)
  1. OLANZAPINE [Suspect]
     Dosage: 970 MG, UNK
  2. SULPIRIDE [Concomitant]
     Dosage: 6.2 G, UNK
  3. OLANZAPINE [Suspect]
     Dosage: UNK, UNKNOWN
  4. OLANZAPINE [Suspect]
     Dosage: 450 MG, UNK

REACTIONS (2)
  - OVERDOSE [None]
  - ELECTROCARDIOGRAM QT INTERVAL [None]
